FAERS Safety Report 6065118-9 (Version None)
Quarter: 2009Q1

REPORT INFORMATION
  Report Type: 
  Country: None (occurrence: None)
  Receive Date: 20090204
  Receipt Date: 20090126
  Transmission Date: 20090719
  Serious: Yes (Other)
  Sender: FDA-Public Use
  Company Number: US-ELI_LILLY_AND_COMPANY-US200901004511

PATIENT
  Age: 73 Year
  Sex: Female

DRUGS (4)
  1. STRATTERA [Suspect]
     Indication: ATTENTION DEFICIT/HYPERACTIVITY DISORDER
     Dosage: 40 MG, UNKNOWN
     Route: 065
     Dates: start: 20070101
  2. EFFEXOR [Concomitant]
  3. NIFEDIPINE [Concomitant]
  4. HORMONES NOS [Concomitant]
     Indication: HORMONE REPLACEMENT THERAPY

REACTIONS (4)
  - CONTUSION [None]
  - FALL [None]
  - LOSS OF CONSCIOUSNESS [None]
  - URINARY INCONTINENCE [None]
